FAERS Safety Report 6243959-2 (Version None)
Quarter: 2009Q2

REPORT INFORMATION
  Report Type: 
  Country: None (occurrence: None)
  Receive Date: 20090623
  Receipt Date: 20090609
  Transmission Date: 20091009
  Serious: Yes (Other)
  Sender: FDA-Public Use
  Company Number: TRP_06277_2009

PATIENT
  Age: 32 Year
  Sex: Female

DRUGS (4)
  1. RIBAVIRIN [Suspect]
     Indication: HEPATITIS C
     Dosage: DF
     Dates: start: 20020101
  2. PEG-INTRON [Suspect]
     Indication: HEPATITIS C
     Dosage: DF
     Dates: start: 20020101
  3. LITHIUM CARBONATE [Concomitant]
  4. PAROXETINE HCL [Concomitant]

REACTIONS (6)
  - ANHEDONIA [None]
  - DEPRESSIVE SYMPTOM [None]
  - DRUG EXPOSURE BEFORE PREGNANCY [None]
  - ELEVATED MOOD [None]
  - GRANDIOSITY [None]
  - TACHYPHRENIA [None]
